FAERS Safety Report 12084004 (Version 2)
Quarter: 2016Q1

REPORT INFORMATION
  Report Type: Spontaneous
  Country: US (occurrence: US)
  Receive Date: 20160217
  Receipt Date: 20160303
  Transmission Date: 20160526
  Serious: Yes (Other)
  Sender: FDA-Public Use
  Company Number: US-ASTRAZENECA-2016SE14356

PATIENT
  Age: 1058 Month
  Sex: Male
  Weight: 81.6 kg

DRUGS (19)
  1. TRAVATAN [Concomitant]
     Active Substance: TRAVOPROST
     Indication: GLAUCOMA
     Route: 047
     Dates: start: 2009
  2. SYMBICORT [Suspect]
     Active Substance: BUDESONIDE\FORMOTEROL FUMARATE DIHYDRATE
     Indication: BRONCHITIS CHRONIC
     Dosage: 160 MCG/4.5  MCG, ONE PUFF DAILY
     Route: 055
     Dates: start: 20160126
  3. SYMBICORT [Suspect]
     Active Substance: BUDESONIDE\FORMOTEROL FUMARATE DIHYDRATE
     Indication: BRONCHITIS CHRONIC
     Dosage: 160 MCG/4.5  MCG, ONE PUFF AT NIGHT
     Route: 055
  4. SYMBICORT [Suspect]
     Active Substance: BUDESONIDE\FORMOTEROL FUMARATE DIHYDRATE
     Indication: BRONCHITIS CHRONIC
     Dosage: 160 MCG/4.5  MCG, ONE PUFF TWICE DAILY
     Route: 055
     Dates: start: 20160131
  5. OMEPRAZOLE. [Suspect]
     Active Substance: OMEPRAZOLE
     Indication: DYSPEPSIA
     Route: 048
  6. ZETIA [Concomitant]
     Active Substance: EZETIMIBE
     Indication: BLOOD CHOLESTEROL ABNORMAL
     Route: 048
  7. PNEUMOCOCCAL VACCINE POLYVALENT NOS [Concomitant]
     Active Substance: PNEUMOCOCCAL VACCINE POLYVALENT
     Indication: PNEUMONIA
  8. FISH OIL [Concomitant]
     Active Substance: FISH OIL
     Indication: SUPPLEMENTATION THERAPY
     Route: 048
  9. SYMBICORT [Suspect]
     Active Substance: BUDESONIDE\FORMOTEROL FUMARATE DIHYDRATE
     Indication: LUNG INFECTION
     Dosage: 160 MCG/4.5  MCG, ONE PUFF DAILY
     Route: 055
     Dates: start: 20160126
  10. SYMBICORT [Suspect]
     Active Substance: BUDESONIDE\FORMOTEROL FUMARATE DIHYDRATE
     Indication: BRONCHITIS CHRONIC
     Dosage: 160 MCG/4.5  MCG, ONE PUFF AM AND ONE PUFF PM
     Route: 055
     Dates: start: 20160129
  11. SYMBICORT [Suspect]
     Active Substance: BUDESONIDE\FORMOTEROL FUMARATE DIHYDRATE
     Indication: LUNG INFECTION
     Dosage: 160 MCG/4.5  MCG, ONE PUFF AM AND ONE PUFF PM
     Route: 055
     Dates: start: 20160129
  12. GLIPIZIDE. [Concomitant]
     Active Substance: GLIPIZIDE
     Indication: TYPE 2 DIABETES MELLITUS
     Route: 048
  13. SYMBICORT [Suspect]
     Active Substance: BUDESONIDE\FORMOTEROL FUMARATE DIHYDRATE
     Indication: LUNG INFECTION
     Dosage: 160 MCG/4.5  MCG, ONE PUFF AT NIGHT
     Route: 055
  14. SYMBICORT [Suspect]
     Active Substance: BUDESONIDE\FORMOTEROL FUMARATE DIHYDRATE
     Indication: LUNG INFECTION
     Dosage: 160 MCG/4.5  MCG, ONE PUFF TWICE DAILY
     Route: 055
     Dates: start: 20160131
  15. CETIRIZINE [Concomitant]
     Active Substance: CETIRIZINE HYDROCHLORIDE
     Indication: HYPERSENSITIVITY
     Route: 048
  16. CLINDAMYCIN [Concomitant]
     Active Substance: CLINDAMYCIN\CLINDAMYCIN PHOSPHATE
     Indication: TOOTH DISORDER
  17. METFORMIN [Concomitant]
     Active Substance: METFORMIN HYDROCHLORIDE
     Indication: TYPE 2 DIABETES MELLITUS
     Route: 048
  18. ASPRIN [Concomitant]
     Active Substance: ASPIRIN
     Route: 048
  19. VITAMIN D [Concomitant]
     Active Substance: CHOLECALCIFEROL
     Indication: SUPPLEMENTATION THERAPY

REACTIONS (22)
  - Pertussis [Recovered/Resolved]
  - Bronchitis [Unknown]
  - Eye infection [Unknown]
  - Off label use [Unknown]
  - Malignant melanoma [Unknown]
  - Squamous cell carcinoma [Recovered/Resolved]
  - Vision blurred [Not Recovered/Not Resolved]
  - Neoplasm malignant [Recovered/Resolved]
  - Foreign body sensation in eyes [Unknown]
  - Blindness unilateral [Unknown]
  - Glaucoma [Unknown]
  - Lung infection [Unknown]
  - Hernia [Unknown]
  - Basal cell carcinoma [Recovered/Resolved]
  - Measles [Recovered/Resolved]
  - Varicella [Recovered/Resolved]
  - Lower respiratory tract infection [Unknown]
  - Intentional product misuse [Unknown]
  - Prostatic disorder [Unknown]
  - Type 2 diabetes mellitus [Not Recovered/Not Resolved]
  - Nephrolithiasis [Recovered/Resolved]
  - Product use issue [Unknown]

NARRATIVE: CASE EVENT DATE: 201512
